FAERS Safety Report 6887409-1 (Version None)
Quarter: 2010Q3

REPORT INFORMATION
  Report Type: 
  Country: None (occurrence: None)
  Receive Date: 20100730
  Receipt Date: 20100324
  Transmission Date: 20110219
  Serious: No
  Sender: FDA-Public Use
  Company Number: A0850255A

PATIENT
  Age: 64 Year
  Sex: Female
  Weight: 63.6 kg

DRUGS (3)
  1. IMITREX [Suspect]
     Indication: MIGRAINE
     Dosage: 100MG AS DIRECTED
     Route: 048
  2. SUMATRIPTAN SUCCINATE [Suspect]
     Indication: MIGRAINE
     Dosage: 100MG AS DIRECTED
     Route: 048
     Dates: start: 20090101
  3. LEVOTHYROXINE SODIUM [Concomitant]

REACTIONS (2)
  - INJURY [None]
  - SKIN LACERATION [None]
